FAERS Safety Report 20019511 (Version 1)
Quarter: 2021Q4

REPORT INFORMATION
  Report Type: Spontaneous
  Country: NL (occurrence: NL)
  Receive Date: 20211101
  Receipt Date: 20211101
  Transmission Date: 20220303
  Serious: Yes (Hospitalization, Other)
  Sender: FDA-Public Use
  Company Number: NL-AZURITY PHARMACEUTICALS, INC.-2021AZY00101

PATIENT
  Age: 57 Year
  Sex: Female

DRUGS (4)
  1. VANCOMYCIN HYDROCHLORIDE [Suspect]
     Active Substance: VANCOMYCIN HYDROCHLORIDE
     Indication: Antibiotic prophylaxis
     Dosage: COMPLETED COURSE
     Route: 048
  2. VANCOMYCIN HYDROCHLORIDE [Suspect]
     Active Substance: VANCOMYCIN HYDROCHLORIDE
     Dosage: PROPHYLAXIS
     Route: 048
  3. MEROPENEM [Concomitant]
     Active Substance: MEROPENEM
     Route: 065
  4. MICAFUNGIN [Concomitant]
     Active Substance: MICAFUNGIN
     Route: 065

REACTIONS (5)
  - Weissella infection [Not Recovered/Not Resolved]
  - Bacterial translocation [Not Recovered/Not Resolved]
  - Shock [Not Recovered/Not Resolved]
  - Lung abscess [Not Recovered/Not Resolved]
  - Liver abscess [Not Recovered/Not Resolved]
